FAERS Safety Report 10364398 (Version 1)
Quarter: 2014Q3

REPORT INFORMATION
  Report Type: Spontaneous
  Country: US (occurrence: None)
  Receive Date: 20140804
  Receipt Date: 20140804
  Transmission Date: 20150326
  Serious: No
  Sender: FDA-Public Use
  Company Number: None

PATIENT
  Age: 31 Year
  Sex: Female
  Weight: 72.58 kg

DRUGS (1)
  1. BUPROPION [Suspect]
     Active Substance: BUPROPION
     Indication: DEPRESSION
     Dosage: 3 ONCE DAILY TAKEN BY MOUTH
     Route: 048
     Dates: start: 20140731, end: 20140803

REACTIONS (11)
  - Tremor [None]
  - Decreased appetite [None]
  - Depression [None]
  - Headache [None]
  - Product substitution issue [None]
  - Myoclonic epilepsy [None]
  - Product quality issue [None]
  - Confusional state [None]
  - Suicidal ideation [None]
  - Paranoia [None]
  - Anxiety [None]

NARRATIVE: CASE EVENT DATE: 20140803
